FAERS Safety Report 13300096 (Version 4)
Quarter: 2017Q2

REPORT INFORMATION
  Report Type: Report from Study
  Country: CA (occurrence: CA)
  Receive Date: 20170306
  Receipt Date: 20170630
  Transmission Date: 20170830
  Serious: Yes (Hospitalization)
  Sender: FDA-Public Use
  Company Number: PHHY2015CA137014

PATIENT
  Age: 42 Year
  Sex: Female

DRUGS (3)
  1. LABETALOL [Concomitant]
     Active Substance: LABETALOL\LABETALOL HYDROCHLORIDE
     Indication: PRODUCT USED FOR UNKNOWN INDICATION
     Dosage: 200 MG, BID
     Route: 065
  2. SANDOSTATIN LAR DEPOT [Suspect]
     Active Substance: OCTREOTIDE ACETATE
     Indication: ACROMEGALY
     Dosage: 20 MG, QMO (EVERY 4 WEEKS)
     Route: 030
     Dates: start: 20150625
  3. SANDOSTATIN LAR DEPOT [Suspect]
     Active Substance: OCTREOTIDE ACETATE
     Dosage: 10 MG, QMO (EVERY 4 WEEKS)
     Route: 030
     Dates: start: 20151015

REACTIONS (10)
  - Viral upper respiratory tract infection [Unknown]
  - Dizziness [Unknown]
  - Insulin-like growth factor increased [Unknown]
  - Stress [Unknown]
  - Feeling hot [Unknown]
  - Loss of consciousness [Unknown]
  - Feeling abnormal [Unknown]
  - Blood pressure systolic increased [Unknown]
  - Wrong technique in product usage process [Unknown]
  - Blood pressure increased [Unknown]

NARRATIVE: CASE EVENT DATE: 20151019
